FAERS Safety Report 9071096 (Version 1)
Quarter: 2013Q1

REPORT INFORMATION
  Report Type: Spontaneous
  Country: US (occurrence: US)
  Receive Date: 20130206
  Receipt Date: 20130206
  Transmission Date: 20140127
  Serious: No
  Sender: FDA-Public Use
  Company Number: US-ALLERGAN-1208870US

PATIENT
  Age: 88 Year
  Sex: Female

DRUGS (7)
  1. RESTASIS? [Suspect]
     Indication: DRY EYE
     Dosage: 2 GTT, BID
     Route: 047
     Dates: start: 201206
  2. REFRESH PLUS [Concomitant]
     Indication: DRY EYE
     Dosage: 2 GTT, QHS
     Route: 047
  3. REFRESH TEARS [Concomitant]
     Indication: DRY EYE
     Dosage: 2 GTT, PRN
     Route: 047
  4. PACERONE [Concomitant]
     Indication: ARRHYTHMIA
     Dosage: UNK
     Route: 048
  5. AVAPRO [Concomitant]
     Indication: HYPERTENSION
     Dosage: UNK
     Route: 048
  6. PLAVIX                             /01220701/ [Concomitant]
     Indication: THROMBOSIS PROPHYLAXIS
     Dosage: UNK
     Route: 048
  7. DETROL                             /01350201/ [Concomitant]
     Indication: INCONTINENCE
     Dosage: UNK
     Route: 048

REACTIONS (1)
  - Vision blurred [Unknown]
